FAERS Safety Report 9902951 (Version 1)
Quarter: 2014Q1

REPORT INFORMATION
  Report Type: Spontaneous
  Country: JP (occurrence: JP)
  Receive Date: 20140217
  Receipt Date: 20140217
  Transmission Date: 20141002
  Serious: Yes (Death)
  Sender: FDA-Public Use
  Company Number: JP-BAXTER-2014BAX006447

PATIENT
  Sex: Male

DRUGS (2)
  1. DIANEAL-N PD-4 1.5 PD SOLUTION [Suspect]
     Indication: RENAL FAILURE CHRONIC
     Route: 033
     Dates: start: 20121220, end: 20140205
  2. EXTRANEAL [Suspect]
     Indication: RENAL FAILURE CHRONIC
     Route: 033
     Dates: start: 20121220, end: 20140205

REACTIONS (2)
  - Neoplasm malignant [Fatal]
  - Respiratory failure [Fatal]
